FAERS Safety Report 10625403 (Version 1)
Quarter: 2014Q4

REPORT INFORMATION
  Report Type: Spontaneous
  Country: FR (occurrence: FR)
  Receive Date: 20141204
  Receipt Date: 20141204
  Transmission Date: 20150529
  Serious: Yes (Other)
  Sender: FDA-Public Use
  Company Number: FR-BRISTOL-MYERS SQUIBB COMPANY-21650742

PATIENT
  Age: 76 Year
  Sex: Female

DRUGS (4)
  1. CORDARONE [Concomitant]
     Active Substance: AMIODARONE HYDROCHLORIDE
  2. IRBESARTAN. [Concomitant]
     Active Substance: IRBESARTAN
  3. IRBESARTAN,HYDROCHLOROTHIAZIDE [Concomitant]
  4. ELIQUIS [Suspect]
     Active Substance: APIXABAN
     Dosage: 5 MG, BID

REACTIONS (1)
  - Drug-induced liver injury [Recovered/Resolved]
